FAERS Safety Report 8052992-X (Version None)
Quarter: 2011Q4

REPORT INFORMATION
  Report Type: 
  Country: None (occurrence: None)
  Receive Date: 20111212
  Receipt Date: 20110817
  Transmission Date: 20120403
  Serious: Yes (Other)
  Sender: FDA-Public Use
  Company Number: PHHY2011US26191

PATIENT
  Age: 32 Year
  Sex: Female

DRUGS (6)
  1. NICORETTE [Concomitant]
  2. COPAXONE [Concomitant]
  3. EXTAVIA [Suspect]
     Indication: MULTIPLE SCLEROSIS
     Dosage: 0.187 MG, QOD, SUBCUTANEOUS, 0.25 MG, QOD, SUBCUTANEOUS
     Route: 058
     Dates: start: 20110311
  4. EXCEDRIN EXTRA STRENGTH (ACETYLSALICYLIC ACID, CAFFEINE, PARACETAMOL) [Concomitant]
  5. DOXYCYCLINE [Concomitant]
  6. MOTRIN [Concomitant]

REACTIONS (8)
  - PAIN [None]
  - HEADACHE [None]
  - INJECTION SITE PAIN [None]
  - ASTHENIA [None]
  - PLATELET COUNT DECREASED [None]
  - FATIGUE [None]
  - INFLUENZA LIKE ILLNESS [None]
  - NAUSEA [None]
